FAERS Safety Report 13978243 (Version 2)
Quarter: 2017Q4

REPORT INFORMATION
  Report Type: Spontaneous
  Country: US (occurrence: US)
  Receive Date: 20170914
  Receipt Date: 20171113
  Transmission Date: 20180321
  Serious: Yes (Other)
  Sender: FDA-Public Use
  Company Number: US-ASTELLAS-2017US033668

PATIENT
  Age: 79 Year
  Sex: Male

DRUGS (2)
  1. XTANDI [Suspect]
     Active Substance: ENZALUTAMIDE
     Route: 065
     Dates: end: 2017
  2. XTANDI [Suspect]
     Active Substance: ENZALUTAMIDE
     Indication: PROSTATE CANCER METASTATIC
     Dosage: UNK, UNKNOWN FREQ.
     Route: 065
     Dates: start: 2016

REACTIONS (7)
  - Prostatic specific antigen increased [Unknown]
  - Oesophagitis [Unknown]
  - Product size issue [Unknown]
  - Fatigue [Unknown]
  - Drug ineffective [Unknown]
  - Dysphagia [Unknown]
  - Underdose [Unknown]

NARRATIVE: CASE EVENT DATE: 20170730
